FAERS Safety Report 4601276-8 (Version None)
Quarter: 2005Q1

REPORT INFORMATION
  Report Type: 
  Country: None (occurrence: None)
  Receive Date: 20050308
  Receipt Date: 20050222
  Transmission Date: 20050727
  Serious: Yes (Other)
  Sender: FDA-Public Use
  Company Number: PHRM2005FR00905

PATIENT
  Age: 50 Year
  Sex: Female

DRUGS (1)
  1. DESERNIL-SANDOZ [Suspect]
     Indication: MIGRAINE PROPHYLAXIS
     Dosage: 3.30 MG/DAY
     Route: 048

REACTIONS (1)
  - HYPERTENSIVE CRISIS [None]
